FAERS Safety Report 24002969 (Version 2)
Quarter: 2024Q3

REPORT INFORMATION
  Report Type: Spontaneous
  Country: US (occurrence: US)
  Receive Date: 20240624
  Receipt Date: 20240722
  Transmission Date: 20241017
  Serious: Yes (Other)
  Sender: SANOFI AVENTIS
  Company Number: US-SA-SAC20240620000398

PATIENT
  Sex: Male

DRUGS (2)
  1. DUPIXENT [Suspect]
     Active Substance: DUPILUMAB
     Indication: Dermatitis atopic
     Dosage: 300 MG, QOW
     Route: 058
  2. GABAPENTIN [Concomitant]
     Active Substance: GABAPENTIN
     Dosage: QOW

REACTIONS (8)
  - Sjogren^s syndrome [Not Recovered/Not Resolved]
  - Intervertebral disc protrusion [Unknown]
  - Depressive symptom [Unknown]
  - Dry mouth [Unknown]
  - Skin disorder [Unknown]
  - Scratch [Not Recovered/Not Resolved]
  - Injection site swelling [Unknown]
  - Dry eye [Unknown]
